FAERS Safety Report 8980734 (Version 1)
Quarter: 2012Q4

REPORT INFORMATION
  Report Type: 
  Country: FR (occurrence: FR)
  Receive Date: 20121221
  Receipt Date: 20121221
  Transmission Date: 20130627
  Serious: Yes (Hospitalization)
  Sender: FDA-Public Use
  Company Number: FR-ASTRAZENECA-2012SE93751

PATIENT
  Age: 60 Year
  Sex: Female

DRUGS (4)
  1. HYTACAND [Suspect]
     Dosage: 16/12.5 MG daily
     Route: 048
  2. IMUREL [Suspect]
     Route: 048
  3. REMICADE [Suspect]
     Route: 042
     Dates: start: 20120125
  4. CORTANCYL [Suspect]
     Route: 048

REACTIONS (2)
  - Erythema nodosum [Recovering/Resolving]
  - Sarcoidosis [Unknown]
